FAERS Safety Report 26114361 (Version 1)
Quarter: 2025Q4

REPORT INFORMATION
  Report Type: Spontaneous
  Country: US (occurrence: US)
  Receive Date: 20251202
  Receipt Date: 20251202
  Transmission Date: 20260118
  Serious: Yes (Other)
  Sender: NOVO NORDISK
  Company Number: US-NOVOPROD-1574423

PATIENT
  Age: 23 Year
  Sex: Female

DRUGS (1)
  1. OZEMPIC [Suspect]
     Active Substance: SEMAGLUTIDE
     Indication: Weight control
     Dosage: 0.25 MG, QW
     Route: 058
     Dates: start: 202411, end: 202412

REACTIONS (4)
  - Fall [Recovered/Resolved]
  - Tendon rupture [Recovered/Resolved]
  - Post procedural infection [Unknown]
  - Off label use [Unknown]

NARRATIVE: CASE EVENT DATE: 20241201
